FAERS Safety Report 10174972 (Version 1)
Quarter: 2014Q2

REPORT INFORMATION
  Report Type: Spontaneous
  Country: BR (occurrence: BR)
  Receive Date: 20140515
  Receipt Date: 20140515
  Transmission Date: 20141212
  Serious: Yes (Other)
  Sender: FDA-Public Use
  Company Number: BR-PFIZER INC-2014130298

PATIENT
  Age: 71 Year
  Sex: Female
  Weight: 78 kg

DRUGS (9)
  1. LIPITOR [Suspect]
     Indication: OSTEOPOROSIS
     Dosage: 1 TABLET OF 40 MG, DAILY
     Route: 048
     Dates: start: 1999, end: 2008
  2. ARADOIS [Concomitant]
     Indication: HIGH DENSITY LIPOPROTEIN
     Dosage: 2 TABLETS OF 50MG (100 MG), DAILY
     Dates: start: 1994
  3. CALCIUM [Concomitant]
     Dosage: 600 ML, DAILY
     Dates: start: 1999
  4. SERTRALINE HYDROCHLORIDE [Concomitant]
     Dosage: 1 UNIT, DAILY
     Dates: start: 201303
  5. DONAREN [Concomitant]
     Dosage: 2 UNITS, DAILY
     Dates: start: 201303
  6. MAGNEM B6 [Concomitant]
     Dosage: 1 UNIT AFTER LUNCH
     Dates: start: 2012
  7. METFORMIN [Concomitant]
     Indication: DIABETES MELLITUS
     Dosage: 2 UNITS , DAILY
     Dates: start: 1994
  8. VARICELL [Concomitant]
     Dosage: 1 UNIT AT NIGHT
  9. ZETIA [Concomitant]
     Dosage: 1 TABLET DAILY

REACTIONS (3)
  - Glaucoma [Unknown]
  - Off label use [Unknown]
  - High density lipoprotein decreased [Unknown]
